FAERS Safety Report 5024551-4 (Version None)
Quarter: 2006Q2

REPORT INFORMATION
  Report Type: 
  Country: None (occurrence: None)
  Receive Date: 20060608
  Receipt Date: 20060608
  Transmission Date: 20061013
  Serious: Yes (Hospitalization)
  Sender: FDA-Public Use
  Company Number: None

PATIENT
  Age: 67 Year
  Sex: Male
  Weight: 70 kg

DRUGS (6)
  1. LISINOPRIL [Suspect]
     Indication: HYPERTENSION
     Dosage: EVERY DAY ORAL
     Route: 048
     Dates: start: 20051017, end: 20060213
  2. ASPIRIN [Concomitant]
  3. SIMVASTATIN [Concomitant]
  4. OMEPRAZOLE [Concomitant]
  5. ACYCLOVIR [Concomitant]
  6. VIAGRA [Concomitant]

REACTIONS (2)
  - ADVERSE DRUG REACTION [None]
  - SWELLING FACE [None]
